FAERS Safety Report 6096759-0 (Version None)
Quarter: 2009Q1

REPORT INFORMATION
  Report Type: 
  Country: None (occurrence: None)
  Receive Date: 20090227
  Receipt Date: 20090220
  Transmission Date: 20090719
  Serious: Yes (Hospitalization)
  Sender: FDA-Public Use
  Company Number: BR-BIOGENIDEC-2009BI004203

PATIENT
  Age: 31 Year
  Sex: Female

DRUGS (4)
  1. AVONEX [Suspect]
     Indication: MULTIPLE SCLEROSIS
     Route: 030
     Dates: start: 20080801
  2. AMANTADINE HCL [Concomitant]
     Indication: ASTHENIA
  3. OMEPRAZOLE [Concomitant]
     Indication: DRUG USE FOR UNKNOWN INDICATION
  4. PANTOPRAZOLE [Concomitant]
     Indication: DRUG USE FOR UNKNOWN INDICATION

REACTIONS (6)
  - ABDOMINAL PAIN UPPER [None]
  - GASTRITIS [None]
  - INFLUENZA LIKE ILLNESS [None]
  - PAIN [None]
  - PAIN IN EXTREMITY [None]
  - SKIN NODULE [None]
